FAERS Safety Report 25089000 (Version 1)
Quarter: 2025Q1

REPORT INFORMATION
  Report Type: Spontaneous
  Country: FR (occurrence: FR)
  Receive Date: 20250318
  Receipt Date: 20250318
  Transmission Date: 20250409
  Serious: Yes (Other)
  Sender: PFIZER
  Company Number: FR-PFIZER INC-PV202400034782

PATIENT
  Age: 11 Year
  Sex: Female

DRUGS (1)
  1. SOMATROPIN [Suspect]
     Active Substance: SOMATROPIN
     Dosage: 2.7 MG, DAILY
     Route: 058
     Dates: start: 20240305, end: 202502

REACTIONS (4)
  - Asthmatic crisis [Unknown]
  - Injection site pain [Unknown]
  - Incorrect dose administered [Unknown]
  - Influenza [Unknown]

NARRATIVE: CASE EVENT DATE: 20240312
